FAERS Safety Report 8502606-7 (Version None)
Quarter: 2012Q3

REPORT INFORMATION
  Report Type: 
  Country: None (occurrence: None)
  Receive Date: 20120711
  Receipt Date: 20120705
  Transmission Date: 20120928
  Serious: Yes (Other)
  Sender: FDA-Public Use
  Company Number: US-PFIZER INC-2012162036

PATIENT
  Sex: Female
  Weight: 61.224 kg

DRUGS (3)
  1. AMITRIPTYLINE [Concomitant]
     Dosage: UNK
  2. NEURONTIN [Suspect]
     Indication: NERVE INJURY
     Dosage: UNK, 3X/DAY
     Route: 048
     Dates: start: 20030101
  3. NEURONTIN [Suspect]
     Indication: MIGRAINE

REACTIONS (3)
  - OVARIAN CYST [None]
  - ENDOMETRIOSIS [None]
  - ADHESION [None]
